FAERS Safety Report 5540813-6 (Version None)
Quarter: 2007Q4

REPORT INFORMATION
  Report Type: 
  Country: None (occurrence: None)
  Receive Date: 20071129
  Receipt Date: 20070709
  Transmission Date: 20080405
  Serious: Yes (Hospitalization)
  Sender: FDA-Public Use
  Company Number: US_0510123117

PATIENT
  Age: 50 Year
  Sex: Male
  Weight: 117.2 kg

DRUGS (5)
  1. ZYPREXA [Suspect]
     Indication: INSOMNIA
     Dosage: 15 MG, EACH EVENING, ORAL
     Route: 048
     Dates: start: 20020304, end: 20030101
  2. EFFEXOR [Concomitant]
  3. NEURONTIN [Concomitant]
  4. REMERON [Concomitant]
  5. SEROQUEL /UNK/ (QUETIAPINE FUMARATE) [Concomitant]

REACTIONS (5)
  - ANXIETY [None]
  - BLOOD GLUCOSE INCREASED [None]
  - DEPRESSION [None]
  - TYPE 2 DIABETES MELLITUS [None]
  - WEIGHT FLUCTUATION [None]
